FAERS Safety Report 11317770 (Version 3)
Quarter: 2015Q4

REPORT INFORMATION
  Report Type: Spontaneous
  Country: US (occurrence: US)
  Receive Date: 20150728
  Receipt Date: 20151005
  Transmission Date: 20160304
  Serious: No
  Sender: FDA-Public Use
  Company Number: US-AMGEN-USASP2015074610

PATIENT
  Age: 33 Year
  Sex: Male

DRUGS (3)
  1. BENADRYL [Concomitant]
     Active Substance: DIPHENHYDRAMINE HYDROCHLORIDE
     Indication: SEASONAL ALLERGY
     Dosage: UNK UNK, AS NECESSARY
  2. ENBREL [Suspect]
     Active Substance: ETANERCEPT
     Dosage: UNK
     Route: 065
  3. ENBREL [Suspect]
     Active Substance: ETANERCEPT
     Indication: PSORIASIS
     Dosage: 50 MG, WEEKLY
     Route: 058
     Dates: start: 2015

REACTIONS (5)
  - Device malfunction [Unknown]
  - Paranasal sinus discomfort [Unknown]
  - Pain [Unknown]
  - Headache [Unknown]
  - Incorrect product storage [Unknown]

NARRATIVE: CASE EVENT DATE: 2015
